FAERS Safety Report 6634391-8 (Version None)
Quarter: 2010Q1

REPORT INFORMATION
  Report Type: 
  Country: None (occurrence: None)
  Receive Date: 20100315
  Receipt Date: 20100305
  Transmission Date: 20100710
  Serious: Yes (Other)
  Sender: FDA-Public Use
  Company Number: US-AMGEN-QUU397676

PATIENT
  Sex: Male

DRUGS (3)
  1. NPLATE [Suspect]
     Indication: IDIOPATHIC THROMBOCYTOPENIC PURPURA
     Dates: start: 20090612
  2. CORTICOSTEROIDS [Concomitant]
     Dates: start: 20080109
  3. AZATHIOPRINE [Concomitant]
     Dates: start: 20080619

REACTIONS (1)
  - OSTEOMYELITIS [None]
